FAERS Safety Report 6698456-7 (Version None)
Quarter: 2010Q2

REPORT INFORMATION
  Report Type: 
  Country: None (occurrence: None)
  Receive Date: 20100427
  Receipt Date: 20100415
  Transmission Date: 20101027
  Serious: Yes (Hospitalization)
  Sender: FDA-Public Use
  Company Number: US-ROCHE-698725

PATIENT
  Sex: Male

DRUGS (15)
  1. BEVACIZUMAB [Suspect]
     Route: 042
     Dates: start: 20100218, end: 20100311
  2. PEMETREXED [Suspect]
     Route: 042
     Dates: start: 20100218, end: 20100311
  3. CARBOPLATIN [Suspect]
     Route: 042
     Dates: start: 20100218, end: 20100311
  4. ASPIRIN [Concomitant]
     Dates: start: 20100129
  5. CALCIUM/VITAMIN D [Concomitant]
     Indication: PROPHYLAXIS
  6. CATAPRES [Concomitant]
     Indication: HYPERTENSION
  7. DECADRON [Concomitant]
     Indication: PROPHYLAXIS
     Dates: start: 20100218
  8. LACTULOSE [Concomitant]
     Indication: CONSTIPATION
     Dates: start: 20100107
  9. MEGACE [Concomitant]
     Indication: WEIGHT DECREASED
     Dates: start: 20100213
  10. MULTIVITAMIN NOS [Concomitant]
     Indication: PROPHYLAXIS
     Dates: start: 20100218
  11. ZOFRAN [Concomitant]
     Indication: ANTIEMETIC SUPPORTIVE CARE
     Dates: start: 20100218
  12. ROXICODONE [Concomitant]
     Indication: PAIN
     Dates: start: 20091209
  13. COMPAZINE [Concomitant]
     Indication: ANTIEMETIC SUPPORTIVE CARE
     Dates: start: 20100107
  14. LIDOCAINE [Concomitant]
     Indication: PAIN
     Dates: start: 20091216
  15. PERCOCET [Concomitant]
     Indication: PAIN
     Dates: start: 20100107

REACTIONS (6)
  - ASTHENIA [None]
  - BLOOD PRESSURE FLUCTUATION [None]
  - FAILURE TO THRIVE [None]
  - FALL [None]
  - IMPAIRED SELF-CARE [None]
  - METASTASES TO BONE [None]
